FAERS Safety Report 5110497-X (Version None)
Quarter: 2006Q3

REPORT INFORMATION
  Report Type: 
  Country: None (occurrence: None)
  Receive Date: 20060921
  Receipt Date: 20060912
  Transmission Date: 20061208
  Serious: Yes (Hospitalization)
  Sender: FDA-Public Use
  Company Number: 2006CG01478

PATIENT
  Age: 78 Year
  Sex: Female
  Weight: 53 kg

DRUGS (5)
  1. NEXIUM [Suspect]
     Route: 048
     Dates: start: 20060717, end: 20060817
  2. RIFADIN [Suspect]
     Route: 048
     Dates: start: 20060707, end: 20060817
  3. CIFLOX [Suspect]
     Route: 048
     Dates: start: 20060707, end: 20060817
  4. ZOLOFT [Suspect]
     Route: 048
     Dates: end: 20060817
  5. ARAVA [Suspect]
     Route: 048
     Dates: end: 20060817

REACTIONS (1)
  - NEUTROPENIA [None]
